FAERS Safety Report 8518982-5 (Version None)
Quarter: 2012Q3

REPORT INFORMATION
  Report Type: 
  Country: None (occurrence: None)
  Receive Date: 20120718
  Receipt Date: 20120709
  Transmission Date: 20120928
  Serious: Yes (Hospitalization)
  Sender: FDA-Public Use
  Company Number: US-VERTEX PHARMACEUTICALS INC.-AE-2012-002577

PATIENT
  Sex: Female

DRUGS (4)
  1. RIBASPHERE [Concomitant]
     Indication: HEPATITIS C
     Route: 048
     Dates: start: 20120218, end: 20120512
  2. INCIVEK [Suspect]
     Indication: HEPATITIS C
     Route: 048
     Dates: start: 20120218, end: 20120512
  3. PEGASYS [Concomitant]
     Indication: HEPATITIS C
     Route: 058
     Dates: start: 20120218, end: 20120512
  4. NARCOTIC [Concomitant]
     Indication: PAIN

REACTIONS (4)
  - MIGRAINE [None]
  - OEDEMA [None]
  - RASH [None]
  - DISTURBANCE IN ATTENTION [None]
